FAERS Safety Report 13960150 (Version 1)
Quarter: 2017Q3

REPORT INFORMATION
  Report Type: Report from Study
  Country: HK (occurrence: HK)
  Receive Date: 20170912
  Receipt Date: 20170912
  Transmission Date: 20171128
  Serious: Yes (Hospitalization, Other)
  Sender: FDA-Public Use
  Company Number: HK-EMD SERONO-8165858

PATIENT
  Age: 21 Year
  Sex: Female

DRUGS (2)
  1. REBIF [Suspect]
     Active Substance: INTERFERON BETA-1A
     Indication: MULTIPLE SCLEROSIS
     Dates: start: 20161102
  2. REBIF [Suspect]
     Active Substance: INTERFERON BETA-1A
     Dosage: RESUMED THERAPY WITH INCREASED DOSE
     Dates: start: 20170701

REACTIONS (4)
  - Injection site reaction [Unknown]
  - Lipodystrophy acquired [Unknown]
  - Multiple sclerosis relapse [Recovering/Resolving]
  - Influenza like illness [Unknown]

NARRATIVE: CASE EVENT DATE: 20170701
